FAERS Safety Report 5267388-3 (Version None)
Quarter: 2007Q1

REPORT INFORMATION
  Report Type: 
  Country: None (occurrence: None)
  Receive Date: 20070316
  Receipt Date: 20070305
  Transmission Date: 20070707
  Serious: Yes (Hospitalization, Disabling)
  Sender: FDA-Public Use
  Company Number: BR-ROCHE-436944

PATIENT
  Age: 45 Year
  Sex: Male
  Weight: 59 kg

DRUGS (5)
  1. PEG-INTERFERON ALFA 2A (RO 25-8310) [Suspect]
     Route: 058
     Dates: start: 20050930, end: 20060217
  2. PEG-INTERFERON ALFA 2A (RO 25-8310) [Suspect]
     Route: 058
     Dates: start: 20060310
  3. EPOGEN [Concomitant]
     Dates: start: 20020515
  4. CAPTOPRIL [Concomitant]
     Dates: start: 20020515
  5. CALCIUM [Concomitant]
     Dates: start: 20020515

REACTIONS (1)
  - CARDIAC FAILURE [None]
